FAERS Safety Report 6543162-2 (Version None)
Quarter: 2010Q1

REPORT INFORMATION
  Report Type: 
  Country: None (occurrence: None)
  Receive Date: 20100120
  Receipt Date: 20100112
  Transmission Date: 20100710
  Serious: Yes (Other)
  Sender: FDA-Public Use
  Company Number: DO-MILLENNIUM PHARMACEUTICALS, INC.-2010-00782

PATIENT

DRUGS (1)
  1. VELCADE [Suspect]
     Indication: MULTIPLE MYELOMA
     Dosage: 1.3 MG/M2, UNK
     Route: 042
     Dates: start: 20091214, end: 20091222

REACTIONS (4)
  - HYPOTHERMIA [None]
  - MUSCLE CONTRACTURE [None]
  - NEUROPATHY PERIPHERAL [None]
  - RASH [None]
